FAERS Safety Report 15036611 (Version 1)
Quarter: 2018Q2

REPORT INFORMATION
  Report Type: Spontaneous
  Country: FR (occurrence: FR)
  Receive Date: 20180620
  Receipt Date: 20180620
  Transmission Date: 20180711
  Serious: Yes (Hospitalization, Other)
  Sender: FDA-Public Use
  Company Number: FR-SA-2018SA157206

PATIENT
  Age: 68 Year
  Sex: Male
  Weight: 91.3 kg

DRUGS (2)
  1. RIFADINE [Suspect]
     Active Substance: RIFAMPIN
     Indication: DEVICE RELATED INFECTION
     Dosage: 900 MG, QD
     Route: 048
     Dates: start: 20180504, end: 20180522
  2. LEVOFLOXACIN. [Concomitant]
     Active Substance: LEVOFLOXACIN
     Indication: DEVICE RELATED INFECTION
     Dosage: 750 MG, QD
     Route: 048
     Dates: start: 20180504, end: 20180522

REACTIONS (4)
  - Tubulointerstitial nephritis [Recovering/Resolving]
  - Hepatocellular injury [Not Recovered/Not Resolved]
  - Acute kidney injury [Recovering/Resolving]
  - Cholestasis [Not Recovered/Not Resolved]

NARRATIVE: CASE EVENT DATE: 20180515
